FAERS Safety Report 6607171-7 (Version None)
Quarter: 2010Q1

REPORT INFORMATION
  Report Type: 
  Country: None (occurrence: None)
  Receive Date: 20100212
  Receipt Date: 20091208
  Transmission Date: 20100710
  Serious: No
  Sender: FDA-Public Use
  Company Number: 1000009929

PATIENT
  Age: 45 Year
  Sex: Female

DRUGS (1)
  1. SAVELLA [Suspect]
     Indication: FIBROMYALGIA
     Dosage: ORAL
     Route: 048
     Dates: start: 20090101, end: 20090101

REACTIONS (2)
  - HOT FLUSH [None]
  - NAUSEA [None]
